FAERS Safety Report 8413021 (Version 6)
Quarter: 2013Q4

REPORT INFORMATION
  Report Type: Spontaneous
  Country: US (occurrence: US)
  Receive Date: 20120217
  Receipt Date: 20131001
  Transmission Date: 20140711
  Serious: Yes (Hospitalization, Other)
  Sender: FDA-Public Use
  Company Number: US-ROCHE-786729

PATIENT
  Sex: Male
  Weight: 74 kg

DRUGS (2)
  1. ACCUTANE [Suspect]
     Indication: ACNE
     Route: 065
     Dates: start: 20021105, end: 2003
  2. ACCUTANE [Suspect]
     Route: 048
     Dates: start: 20050405, end: 20070130

REACTIONS (7)
  - Crohn^s disease [Unknown]
  - Intestinal perforation [Unknown]
  - Prostate cancer [Unknown]
  - Inflammatory bowel disease [Unknown]
  - Vitamin B12 deficiency [Unknown]
  - Rectal polyp [Unknown]
  - Arthralgia [Unknown]
